FAERS Safety Report 8286390-0 (Version None)
Quarter: 2012Q2

REPORT INFORMATION
  Report Type: 
  Country: None (occurrence: None)
  Receive Date: 20120411
  Receipt Date: 20120327
  Transmission Date: 20120825
  Serious: Yes (Other)
  Sender: FDA-Public Use
  Company Number: CA-1191512

PATIENT

DRUGS (3)
  1. TOBRAMYCIN SULFATE [Concomitant]
  2. MAXIDEX OINTMENT [Suspect]
     Indication: ANTIINFLAMMATORY THERAPY
     Dosage: (4 TIMES EVERY DAY OPHTHALMIC)
     Route: 047
  3. ATROPINE [Concomitant]

REACTIONS (2)
  - ANGLE CLOSURE GLAUCOMA [None]
  - POST PROCEDURAL COMPLICATION [None]
